FAERS Safety Report 6388924-X (Version None)
Quarter: 2009Q4

REPORT INFORMATION
  Report Type: 
  Country: None (occurrence: None)
  Receive Date: 20091005
  Receipt Date: 20090924
  Transmission Date: 20100525
  Serious: Yes (Hospitalization)
  Sender: FDA-Public Use
  Company Number: JP-GILEAD-2009-0023326

PATIENT
  Sex: Male

DRUGS (7)
  1. TRUVADA [Suspect]
     Indication: HIV INFECTION
     Route: 048
     Dates: start: 20070319
  2. KALETRA [Suspect]
     Indication: HIV INFECTION
     Route: 048
     Dates: start: 20070319
  3. RISPERDAL [Suspect]
     Indication: ALCOHOLIC PSYCHOSIS
     Route: 048
     Dates: start: 20090202
  4. VALGANCICLOVIR HCL [Concomitant]
     Dates: start: 20070219
  5. ZITHROMAX [Concomitant]
     Dates: start: 20070206
  6. BAKTAR [Concomitant]
     Dates: start: 20080401, end: 20080818
  7. LENDORMIN [Concomitant]
     Dates: start: 20080401, end: 20090202

REACTIONS (2)
  - ANOGENITAL WARTS [None]
  - PSYCHOTIC DISORDER [None]
